FAERS Safety Report 8537652-0 (Version None)
Quarter: 2012Q3

REPORT INFORMATION
  Report Type: 
  Country: None (occurrence: None)
  Receive Date: 20120725
  Receipt Date: 20120717
  Transmission Date: 20120928
  Serious: Yes (Disabling)
  Sender: FDA-Public Use
  Company Number: PHHY2012JP055117

PATIENT
  Age: 45 Year
  Sex: Female

DRUGS (4)
  1. NEORAL [Suspect]
     Indication: STEM CELL TRANSPLANT
  2. METHOTREXATE [Concomitant]
     Indication: PROPHYLAXIS AGAINST GRAFT VERSUS HOST DISEASE
     Route: 042
  3. CYCLOPHOSPHAMIDE [Concomitant]
     Indication: PROPHYLAXIS AGAINST GRAFT VERSUS HOST DISEASE
  4. NEORAL [Suspect]
     Indication: PROPHYLAXIS AGAINST GRAFT VERSUS HOST DISEASE
     Dosage: 240 MG, DAILY
     Route: 048
     Dates: start: 20110601, end: 20111001

REACTIONS (5)
  - PULMONARY HYPERTENSION [None]
  - PULMONARY VENO-OCCLUSIVE DISEASE [None]
  - HYPOXIA [None]
  - PULMONARY OEDEMA [None]
  - RESPIRATORY DISTRESS [None]
